FAERS Safety Report 12799688 (Version 1)
Quarter: 2016Q3

REPORT INFORMATION
  Report Type: Spontaneous
  Country: US (occurrence: US)
  Receive Date: 20160930
  Receipt Date: 20160930
  Transmission Date: 20161109
  Serious: Yes (Hospitalization)
  Sender: FDA-Public Use
  Company Number: US-PFIZER INC-2016432000

PATIENT
  Age: 73 Year
  Sex: Female
  Weight: 74.84 kg

DRUGS (2)
  1. INSULIN [Concomitant]
     Active Substance: INSULIN NOS
     Indication: DIABETES MELLITUS
     Dosage: 2 UNITS ONCE IN THE MORNING AND 3 OR 4 UNITS ONCE AT NIGHT
  2. REVATIO [Suspect]
     Active Substance: SILDENAFIL CITRATE
     Indication: PULMONARY HYPERTENSION
     Dosage: 40 MG, 3X/DAY (20 MG, TABLETS, ORALLY BY MOUTH, 2 TABLETS THRICE A DAY)
     Route: 048

REACTIONS (3)
  - Device related infection [Recovering/Resolving]
  - Renal impairment [Unknown]
  - Product use issue [Not Recovered/Not Resolved]

NARRATIVE: CASE EVENT DATE: 2010
